FAERS Safety Report 7633529-3 (Version None)
Quarter: 2011Q3

REPORT INFORMATION
  Report Type: 
  Country: None (occurrence: None)
  Receive Date: 20110725
  Receipt Date: 20110718
  Transmission Date: 20111222
  Serious: Yes (Hospitalization, Other)
  Sender: FDA-Public Use
  Company Number: US-TEVA-291278USA

PATIENT
  Age: 2 Year
  Sex: Male

DRUGS (1)
  1. BUPRENORPHINE [Suspect]

REACTIONS (2)
  - LEUKOENCEPHALOPATHY [None]
  - ACCIDENTAL DRUG INTAKE BY CHILD [None]
